FAERS Safety Report 13622060 (Version 2)
Quarter: 2018Q2

REPORT INFORMATION
  Report Type: Spontaneous
  Country: US (occurrence: US)
  Receive Date: 20170607
  Receipt Date: 20180625
  Transmission Date: 20180711
  Serious: No
  Sender: FDA-Public Use
  Company Number: US-ROCHE-1917483

PATIENT
  Sex: Male

DRUGS (4)
  1. XELODA [Suspect]
     Active Substance: CAPECITABINE
     Indication: NEOPLASM MALIGNANT
     Route: 048
     Dates: start: 20170125
  2. XELODA [Suspect]
     Active Substance: CAPECITABINE
     Dosage: 2000 MG IN AM ON DAYS 1-7
     Route: 048
  3. XELODA [Suspect]
     Active Substance: CAPECITABINE
     Route: 048
     Dates: start: 20170125
  4. XELODA [Suspect]
     Active Substance: CAPECITABINE
     Dosage: 2000 MG IN PM 1-7 OF EACH 14 DAY CYCLE
     Route: 048
     Dates: start: 20170215

REACTIONS (13)
  - Skin fissures [Unknown]
  - Skin fissures [Not Recovered/Not Resolved]
  - Dizziness [Unknown]
  - Onychomadesis [Unknown]
  - Fatigue [Not Recovered/Not Resolved]
  - Hypoaesthesia [Not Recovered/Not Resolved]
  - Skin exfoliation [Not Recovered/Not Resolved]
  - Memory impairment [Not Recovered/Not Resolved]
  - Somnolence [Not Recovered/Not Resolved]
  - Pruritus [Unknown]
  - Dizziness [Not Recovered/Not Resolved]
  - Joint range of motion decreased [Not Recovered/Not Resolved]
  - Dry skin [Unknown]
